FAERS Safety Report 4582437-3 (Version None)
Quarter: 2005Q1

REPORT INFORMATION
  Report Type: 
  Country: None (occurrence: None)
  Receive Date: 20050125
  Receipt Date: 20040902
  Transmission Date: 20050727
  Serious: Yes (Death, Hospitalization)
  Sender: FDA-Public Use
  Company Number: REM_00066_2004

PATIENT
  Age: 45 Year
  Sex: Male
  Weight: 62.5 kg

DRUGS (12)
  1. REMODULIN [Suspect]
     Indication: PULMONARY HYPERTENSION
     Dosage: 3.7 NG/KG/MIN CONTINUOUS SC
     Route: 058
     Dates: start: 20040510, end: 20040613
  2. TRACLEER [Suspect]
     Indication: PULMONARY HYPERTENSION
     Dosage: 62.5 MG BID PO
     Route: 048
     Dates: start: 20021017, end: 20021112
  3. TRACLEER [Suspect]
     Indication: PULMONARY HYPERTENSION
     Dosage: 125 MG BID PO
     Route: 048
     Dates: start: 20021101
  4. LASIX [Concomitant]
  5. ZAROXOLYN [Concomitant]
  6. PREVACID [Concomitant]
  7. EFFEXOR [Concomitant]
  8. K-TAB [Concomitant]
  9. ALDACTONE [Concomitant]
  10. MAGNESIUM [Concomitant]
  11. DURAGESIC [Concomitant]
  12. MS04 [Concomitant]

REACTIONS (8)
  - BRADYCARDIA [None]
  - CARDIAC ARREST [None]
  - INFUSION SITE PAIN [None]
  - OEDEMA PERIPHERAL [None]
  - PULMONARY HYPERTENSION [None]
  - RENAL FAILURE [None]
  - RESPIRATORY FAILURE [None]
  - SCROTAL OEDEMA [None]
